FAERS Safety Report 14871254 (Version 1)
Quarter: 2018Q2

REPORT INFORMATION
  Report Type: Other
  Country: US (occurrence: US)
  Receive Date: 20180509
  Receipt Date: 20180509
  Transmission Date: 20180711
  Serious: Yes (Hospitalization, Other)
  Sender: FDA-Public Use
  Company Number: US-ALKERMES INC.-ALK-2017-002406

PATIENT
  Age: 28 Year
  Sex: Male
  Weight: 88.44 kg

DRUGS (1)
  1. VIVITROL [Suspect]
     Active Substance: NALTREXONE
     Indication: DRUG DEPENDENCE
     Dosage: 380 MG, QMO
     Route: 030
     Dates: start: 20170128

REACTIONS (19)
  - Mental disorder [Unknown]
  - Vomiting [Unknown]
  - Pyrexia [Unknown]
  - Restlessness [Unknown]
  - Lethargy [Unknown]
  - Gastroenteritis viral [Unknown]
  - Euphoric mood [Unknown]
  - Blood phosphorus abnormal [Unknown]
  - Blood creatinine increased [Unknown]
  - Neuroleptic malignant syndrome [Unknown]
  - Malaise [Unknown]
  - Somnolence [Unknown]
  - Sluggishness [Unknown]
  - Drug interaction [Unknown]
  - Blood potassium increased [Unknown]
  - Adverse drug reaction [Unknown]
  - Drug dependence [Unknown]
  - Drug screen positive [Unknown]
  - Fatigue [Unknown]

NARRATIVE: CASE EVENT DATE: 201702
